FAERS Safety Report 5815745-6 (Version None)
Quarter: 2008Q3

REPORT INFORMATION
  Report Type: 
  Country: None (occurrence: None)
  Receive Date: 20080721
  Receipt Date: 20080312
  Transmission Date: 20090109
  Serious: No
  Sender: FDA-Public Use
  Company Number: US-KINGPHARMUSA00001-K200800331

PATIENT

DRUGS (2)
  1. BICILLIN L-A [Suspect]
     Indication: STREPTOCOCCAL INFECTION
     Dosage: 1200000 U, SINGLE
     Dates: start: 20080225, end: 20080225
  2. BICILLIN L-A [Suspect]
     Indication: VOMITING

REACTIONS (4)
  - INJECTION SITE ABSCESS [None]
  - INJECTION SITE ERYTHEMA [None]
  - INJECTION SITE INFECTION [None]
  - INJECTION SITE SWELLING [None]
